FAERS Safety Report 24084198 (Version 1)
Quarter: 2024Q3

REPORT INFORMATION
  Report Type: Spontaneous
  Country: BE (occurrence: BE)
  Receive Date: 20240712
  Receipt Date: 20240712
  Transmission Date: 20241016
  Serious: No
  Sender: PIERRE FABRE MEDICAMENT
  Company Number: BE-PFM-2022-03545

PATIENT
  Age: 25 Year
  Sex: Female

DRUGS (3)
  1. PROPRANOLOL [Suspect]
     Active Substance: PROPRANOLOL HYDROCHLORIDE
     Indication: Carcinoid syndrome
     Dosage: 10 MG/DAY
     Route: 065
  2. PROPRANOLOL [Suspect]
     Active Substance: PROPRANOLOL HYDROCHLORIDE
     Indication: Off label use
  3. BILASTINE [Suspect]
     Active Substance: BILASTINE
     Indication: Carcinoid syndrome
     Dosage: 20 MG, BID (2/DAY)
     Route: 065

REACTIONS (4)
  - Drug ineffective [Unknown]
  - Product use in unapproved indication [Unknown]
  - Product use issue [Unknown]
  - Off label use [Unknown]
